FAERS Safety Report 12254061 (Version 1)
Quarter: 2016Q2

REPORT INFORMATION
  Report Type: Spontaneous
  Country: US (occurrence: US)
  Receive Date: 20160411
  Receipt Date: 20160411
  Transmission Date: 20160815
  Serious: No
  Sender: FDA-Public Use
  Company Number: US-WATSON-2016-00934

PATIENT
  Age: 68 Year
  Sex: Female

DRUGS (5)
  1. IBANDRONATE (WATSON LABORATORIES) [Suspect]
     Active Substance: IBANDRONATE SODIUM
     Indication: BONE LOSS
     Dosage: 150 MG, ONCE A MONTH
     Route: 048
     Dates: start: 20151120
  2. CALCIUM [Concomitant]
     Active Substance: CALCIUM
     Indication: BONE LOSS
     Dosage: UNK, UNKNOWN
     Route: 065
  3. HYDROCODONE [Concomitant]
     Active Substance: HYDROCODONE
     Indication: BACK PAIN
     Dosage: UNK, UNKNOWN
     Route: 065
  4. VITAMIN D                          /00107901/ [Concomitant]
     Active Substance: ERGOCALCIFEROL
     Indication: BONE LOSS
     Dosage: UNK, UNKNOWN
     Route: 065
  5. XANAX [Concomitant]
     Active Substance: ALPRAZOLAM
     Indication: PANIC ATTACK
     Dosage: UNK, UNKNOWN
     Route: 065

REACTIONS (10)
  - Headache [Not Recovered/Not Resolved]
  - Abdominal pain upper [Not Recovered/Not Resolved]
  - Paraesthesia [Not Recovered/Not Resolved]
  - Asthenia [Not Recovered/Not Resolved]
  - Bone pain [Not Recovered/Not Resolved]
  - Hypoaesthesia [Not Recovered/Not Resolved]
  - Myalgia [Not Recovered/Not Resolved]
  - Oral pain [Not Recovered/Not Resolved]
  - Ageusia [Not Recovered/Not Resolved]
  - Eye pain [Not Recovered/Not Resolved]

NARRATIVE: CASE EVENT DATE: 20151126
